FAERS Safety Report 24066685 (Version 15)
Quarter: 2025Q3

REPORT INFORMATION
  Report Type: Report from Study
  Country: CN (occurrence: CN)
  Receive Date: 20240709
  Receipt Date: 20250910
  Transmission Date: 20251020
  Serious: Yes (Hospitalization, Other)
  Sender: ROCHE
  Company Number: CN-ROCHE-3572059

PATIENT
  Age: 49 Year
  Sex: Female
  Weight: 69 kg

DRUGS (73)
  1. POLATUZUMAB VEDOTIN [Suspect]
     Active Substance: POLATUZUMAB VEDOTIN
     Indication: Diffuse large B-cell lymphoma
     Dosage: ON 15-JUL-2024 THERAPY WAS STARTED.
     Route: 042
     Dates: start: 20240123, end: 20240123
  2. POLATUZUMAB VEDOTIN [Suspect]
     Active Substance: POLATUZUMAB VEDOTIN
     Route: 042
     Dates: start: 20240414, end: 20240414
  3. POLATUZUMAB VEDOTIN [Suspect]
     Active Substance: POLATUZUMAB VEDOTIN
     Dosage: ON 15-JUL-2024 THERAPY WAS STARTED.
     Route: 042
     Dates: start: 20240715, end: 20240715
  4. POLATUZUMAB VEDOTIN [Suspect]
     Active Substance: POLATUZUMAB VEDOTIN
     Dosage: ON 15-JUL-2024 THERAPY WAS STARTED.
     Route: 042
     Dates: start: 20240716, end: 20240716
  5. RITUXIMAB [Suspect]
     Active Substance: RITUXIMAB
     Indication: Diffuse large B-cell lymphoma
     Route: 042
     Dates: start: 20240122, end: 20240122
  6. RITUXIMAB [Suspect]
     Active Substance: RITUXIMAB
     Route: 042
     Dates: start: 20240304, end: 20240304
  7. CYCLOPHOSPHAMIDE [Suspect]
     Active Substance: CYCLOPHOSPHAMIDE
     Indication: Diffuse large B-cell lymphoma
     Dosage: START DATE OF FIRST DOSE OF 1000 MG STUDY DRUG: 26-JAN-2024
     Route: 042
     Dates: end: 20240126
  8. CYCLOPHOSPHAMIDE [Suspect]
     Active Substance: CYCLOPHOSPHAMIDE
     Dosage: START DATE OF FIRST DOSE OF 1000 MG STUDY DRUG: 26-JAN-2024
     Route: 042
     Dates: start: 20240716, end: 20240716
  9. MITOXANTRONE [Suspect]
     Active Substance: MITOXANTRONE HYDROCHLORIDE
     Indication: Diffuse large B-cell lymphoma
     Dosage: THERAPY START DATE: 26-JAN-2024
     Route: 042
     Dates: end: 20240126
  10. MITOXANTRONE [Suspect]
     Active Substance: MITOXANTRONE HYDROCHLORIDE
     Route: 042
     Dates: start: 20240415, end: 20240415
  11. MITOXANTRONE [Suspect]
     Active Substance: MITOXANTRONE HYDROCHLORIDE
     Route: 042
     Dates: start: 20240716, end: 20240716
  12. TUCIDINOSTAT [Suspect]
     Active Substance: TUCIDINOSTAT
     Indication: Diffuse large B-cell lymphoma
     Route: 048
     Dates: end: 20240430
  13. OBINUTUZUMAB [Suspect]
     Active Substance: OBINUTUZUMAB
     Indication: Diffuse large B-cell lymphoma
     Route: 042
     Dates: end: 20240715
  14. DEXAMETHASONE [Suspect]
     Active Substance: DEXAMETHASONE
     Indication: Diffuse large B-cell lymphoma
     Dosage: START DATE: 15-JUL-2024
     Route: 042
     Dates: end: 20240716
  15. SODIUM BICARBONATE [Concomitant]
     Active Substance: SODIUM BICARBONATE
     Route: 042
     Dates: start: 20240118, end: 20240209
  16. SODIUM BICARBONATE [Concomitant]
     Active Substance: SODIUM BICARBONATE
     Route: 042
     Dates: start: 20240407, end: 20240407
  17. SODIUM BICARBONATE [Concomitant]
     Active Substance: SODIUM BICARBONATE
     Route: 042
     Dates: start: 20240712, end: 20240712
  18. FEBUXOSTAT [Concomitant]
     Active Substance: FEBUXOSTAT
     Route: 048
     Dates: start: 20240118
  19. Entecavir Tablets [Concomitant]
     Route: 048
     Dates: start: 20240118
  20. Urokinase for Injection [Concomitant]
     Route: 042
     Dates: start: 20240121, end: 20240121
  21. CALCIUM GLUCONATE [Concomitant]
     Active Substance: CALCIUM GLUCONATE
     Route: 042
     Dates: start: 20240122, end: 20240122
  22. CALCIUM GLUCONATE [Concomitant]
     Active Substance: CALCIUM GLUCONATE
     Route: 042
     Dates: start: 20240413, end: 20240413
  23. ACYCLOVIR [Concomitant]
     Active Substance: ACYCLOVIR
     Route: 048
     Dates: start: 20240119
  24. DIPHENHYDRAMINE HYDROCHLORIDE [Concomitant]
     Active Substance: DIPHENHYDRAMINE HYDROCHLORIDE
     Route: 042
     Dates: start: 20240122, end: 20240122
  25. DIPHENHYDRAMINE HYDROCHLORIDE [Concomitant]
     Active Substance: DIPHENHYDRAMINE HYDROCHLORIDE
     Route: 042
     Dates: start: 20240123, end: 20240123
  26. Ademetionine 1,4-Butanedisulfonate for Injection [Concomitant]
     Route: 042
     Dates: start: 20240124, end: 20240124
  27. Silibinin Capsules [Concomitant]
     Route: 048
     Dates: start: 20240124
  28. Ivabradine Hydrochloride Tablets [Concomitant]
     Route: 048
     Dates: start: 20240126, end: 20240126
  29. Hydrotalcite Chewable Tablets [Concomitant]
     Route: 048
     Dates: start: 20240126, end: 20240126
  30. DEXRAZOXANE [Concomitant]
     Active Substance: DEXRAZOXANE
     Route: 042
     Dates: start: 20240126, end: 20240126
  31. DEXRAZOXANE [Concomitant]
     Active Substance: DEXRAZOXANE
     Route: 042
     Dates: start: 20240716, end: 20240716
  32. Etamsylate Injection [Concomitant]
     Route: 042
     Dates: start: 20240219, end: 20240223
  33. VITAMIN K1 [Concomitant]
     Active Substance: PHYTONADIONE
     Route: 042
     Dates: start: 20240219, end: 20240223
  34. RECOMBINANT HUMAN THROMBOPOIETIN [Concomitant]
     Active Substance: RECOMBINANT HUMAN THROMBOPOIETIN
     Dosage: 15000 U
     Route: 030
     Dates: start: 20240220, end: 20240223
  35. DEXAMETHASONE SODIUM PHOSPHATE [Concomitant]
     Active Substance: DEXAMETHASONE SODIUM PHOSPHATE
     Route: 042
     Dates: start: 20240110, end: 20240126
  36. DEXAMETHASONE SODIUM PHOSPHATE [Concomitant]
     Active Substance: DEXAMETHASONE SODIUM PHOSPHATE
     Route: 042
     Dates: start: 20240126, end: 20240209
  37. DEXAMETHASONE SODIUM PHOSPHATE [Concomitant]
     Active Substance: DEXAMETHASONE SODIUM PHOSPHATE
     Route: 042
     Dates: start: 20240220, end: 20240223
  38. DEXAMETHASONE SODIUM PHOSPHATE [Concomitant]
     Active Substance: DEXAMETHASONE SODIUM PHOSPHATE
     Route: 042
     Dates: start: 20240414, end: 20240414
  39. DEXAMETHASONE SODIUM PHOSPHATE [Concomitant]
     Active Substance: DEXAMETHASONE SODIUM PHOSPHATE
     Route: 042
     Dates: start: 20240715, end: 20240716
  40. PANTOPRAZOLE SODIUM [Concomitant]
     Active Substance: PANTOPRAZOLE SODIUM
     Route: 042
     Dates: start: 20240220, end: 20240223
  41. PANTOPRAZOLE SODIUM [Concomitant]
     Active Substance: PANTOPRAZOLE SODIUM
     Route: 042
     Dates: start: 20240406, end: 20240416
  42. CEFEPIME HYDROCHLORIDE [Concomitant]
     Active Substance: CEFEPIME HYDROCHLORIDE
     Route: 042
     Dates: start: 20240222, end: 20240223
  43. TRANEXAMIC ACID [Concomitant]
     Active Substance: TRANEXAMIC ACID
     Route: 042
     Dates: start: 20240221, end: 20240221
  44. ELTROMBOPAG OLAMINE [Concomitant]
     Active Substance: ELTROMBOPAG OLAMINE
     Route: 048
     Dates: start: 20240223
  45. DEFERASIROX [Concomitant]
     Active Substance: DEFERASIROX
     Route: 048
     Dates: start: 20240223
  46. VITAMIN B6 [Concomitant]
     Active Substance: PYRIDOXINE HYDROCHLORIDE
     Route: 042
     Dates: start: 20240108, end: 20240209
  47. VITAMIN B6 [Concomitant]
     Active Substance: PYRIDOXINE HYDROCHLORIDE
     Route: 042
     Dates: start: 20240407, end: 20240416
  48. VITAMIN B6 [Concomitant]
     Active Substance: PYRIDOXINE HYDROCHLORIDE
     Route: 042
     Dates: start: 20240712, end: 20240719
  49. MAGNESIUM ISOGLYCYRRHIZINATE [Concomitant]
     Active Substance: MAGNESIUM ISOGLYCYRRHIZINATE
     Route: 042
     Dates: start: 20240115, end: 20240209
  50. ESOMEPRAZOLE SODIUM [Concomitant]
     Active Substance: ESOMEPRAZOLE SODIUM
     Route: 042
     Dates: start: 20240117, end: 20240209
  51. PANTOPRAZOLE [Concomitant]
     Active Substance: PANTOPRAZOLE
     Route: 048
     Dates: start: 20240112, end: 20240209
  52. PANTOPRAZOLE [Concomitant]
     Active Substance: PANTOPRAZOLE
     Route: 048
     Dates: start: 20240712, end: 20240719
  53. CHLORHEXIDINE GLUCONATE [Concomitant]
     Active Substance: CHLORHEXIDINE GLUCONATE
     Route: 048
     Dates: start: 20240112, end: 20240209
  54. Imipenem statin [Concomitant]
     Route: 042
     Dates: start: 20240718, end: 20240720
  55. RUXOLITINIB [Concomitant]
     Active Substance: RUXOLITINIB
     Route: 048
     Dates: start: 20240110
  56. RUXOLITINIB [Concomitant]
     Active Substance: RUXOLITINIB
     Route: 048
     Dates: start: 20240708
  57. Flurbiprofen Cataplasms [Concomitant]
     Dates: start: 20240126, end: 20240126
  58. EPINEPHRINE HYDROCHLORIDE [Concomitant]
     Active Substance: EPINEPHRINE HYDROCHLORIDE
     Route: 042
     Dates: start: 20240221, end: 20240221
  59. CEFOPERAZONE\SULBACTAM [Concomitant]
     Active Substance: CEFOPERAZONE\SULBACTAM
     Route: 042
     Dates: start: 20240108, end: 20240126
  60. CEFOPERAZONE\SULBACTAM [Concomitant]
     Active Substance: CEFOPERAZONE\SULBACTAM
     Route: 042
     Dates: start: 20240209, end: 20240209
  61. LACTULOSE [Concomitant]
     Active Substance: LACTULOSE
     Route: 048
     Dates: start: 20240419
  62. Intravenous infusion of human immunoglobulin [Concomitant]
     Route: 042
     Dates: start: 20240410, end: 20240410
  63. Promethazine injection [Concomitant]
     Route: 030
     Dates: start: 20240413, end: 20240413
  64. Promethazine injection [Concomitant]
     Route: 030
     Dates: start: 20240715, end: 20240716
  65. tathion injection [Concomitant]
     Route: 042
     Dates: start: 20240712, end: 20240719
  66. ESOMEPRAZOLE MAGNESIUM [Concomitant]
     Active Substance: ESOMEPRAZOLE MAGNESIUM
     Route: 048
     Dates: start: 20240307
  67. Glutathione for injection [Concomitant]
     Route: 042
     Dates: start: 20240406, end: 20240416
  68. ondansetron inj [Concomitant]
     Route: 042
     Dates: start: 20240716, end: 20240716
  69. ondansetron inj [Concomitant]
     Route: 042
     Dates: start: 20240719, end: 20240719
  70. Acetaminophen sustained-release tablets [Concomitant]
     Route: 048
     Dates: start: 20240716
  71. ANF-RHO [Concomitant]
     Active Substance: ANF-RHO
  72. kang fu xin [Concomitant]
  73. Mesa sodium injection [Concomitant]

REACTIONS (23)
  - Platelet count decreased [Recovered/Resolved]
  - Pneumonia [Recovered/Resolved]
  - Neutrophil count decreased [Recovered/Resolved]
  - Neutrophil count decreased [Recovered/Resolved]
  - Cough [Recovered/Resolved]
  - Hypercholesterolaemia [Not Recovered/Not Resolved]
  - Bronchitis [Recovered/Resolved]
  - Pyrexia [Recovered/Resolved]
  - Leukopenia [Recovered/Resolved]
  - C-reactive protein increased [Recovered/Resolved]
  - Myelosuppression [Recovered/Resolved]
  - Hypokalaemia [Not Recovered/Not Resolved]
  - Hypermagnesaemia [Recovered/Resolved]
  - Pyrexia [Recovered/Resolved]
  - Urine ketone body present [Not Recovered/Not Resolved]
  - Lymphocyte count decreased [Not Recovered/Not Resolved]
  - Hypoalbuminaemia [Not Recovered/Not Resolved]
  - Hyponatraemia [Recovered/Resolved]
  - Hypophosphataemia [Not Recovered/Not Resolved]
  - Parainfluenzae virus infection [Not Recovered/Not Resolved]
  - Blood urea increased [Recovered/Resolved]
  - Leukopenia [Recovered/Resolved]
  - Glutathione reductase activity increased [Not Recovered/Not Resolved]

NARRATIVE: CASE EVENT DATE: 20240124
